FAERS Safety Report 5175283-3 (Version None)
Quarter: 2006Q4

REPORT INFORMATION
  Report Type: 
  Country: None (occurrence: None)
  Receive Date: 20061211
  Receipt Date: 20061211
  Transmission Date: 20070319
  Serious: Yes (Hospitalization)
  Sender: FDA-Public Use
  Company Number: None

PATIENT
  Age: 46 Year
  Sex: Female
  Weight: 48.0813 kg

DRUGS (1)
  1. ENBREL [Suspect]
     Indication: RHEUMATOID ARTHRITIS
     Dosage: .3CC  2@WK
     Dates: start: 20041210, end: 20041216

REACTIONS (6)
  - CHEST PAIN [None]
  - GASTRIC DISORDER [None]
  - HEADACHE [None]
  - PARTIAL SEIZURES [None]
  - SKIN BURNING SENSATION [None]
  - VISION BLURRED [None]
